FAERS Safety Report 14944429 (Version 3)
Quarter: 2018Q3

REPORT INFORMATION
  Report Type: Report from Study
  Country: None (occurrence: US)
  Receive Date: 20180529
  Receipt Date: 20180814
  Transmission Date: 20181010
  Serious: Yes (Hospitalization, Other)
  Sender: FDA-Public Use
  Company Number: US-ABBVIE-17K-163-1874841-00

PATIENT
  Age: 68 Year
  Sex: Female
  Weight: 42.22 kg

DRUGS (8)
  1. VITAMIN B12 [Concomitant]
     Active Substance: CYANOCOBALAMIN
     Indication: VITAMIN SUPPLEMENTATION
  2. HUMIRA [Suspect]
     Active Substance: ADALIMUMAB
     Route: 058
     Dates: end: 201803
  3. FOLIC ACID. [Concomitant]
     Active Substance: FOLIC ACID
     Indication: RHEUMATOID ARTHRITIS
  4. ONDANSETRON [Concomitant]
     Active Substance: ONDANSETRON
     Indication: NAUSEA
  5. PREDNISONE. [Concomitant]
     Active Substance: PREDNISONE
     Indication: RHEUMATOID ARTHRITIS
  6. DOXYCYCLINE. [Concomitant]
     Active Substance: DOXYCYCLINE
     Indication: PRODUCT USED FOR UNKNOWN INDICATION
  7. HUMIRA [Suspect]
     Active Substance: ADALIMUMAB
     Indication: RHEUMATOID ARTHRITIS
     Route: 058
  8. METHOTREXATE. [Concomitant]
     Active Substance: METHOTREXATE
     Indication: RHEUMATOID ARTHRITIS

REACTIONS (22)
  - Musculoskeletal disorder [Not Recovered/Not Resolved]
  - Mobility decreased [Unknown]
  - Joint range of motion decreased [Not Recovered/Not Resolved]
  - Rheumatoid arthritis [Unknown]
  - Muscular weakness [Unknown]
  - Eye inflammation [Recovering/Resolving]
  - Hypoaesthesia [Unknown]
  - Cyst [Recovering/Resolving]
  - Dysstasia [Unknown]
  - Calcinosis [Unknown]
  - Burning sensation [Unknown]
  - Paraesthesia [Unknown]
  - Procedural pain [Not Recovered/Not Resolved]
  - Spinal cord infection [Unknown]
  - Carpal tunnel syndrome [Unknown]
  - Hypotonia [Unknown]
  - Visual impairment [Recovering/Resolving]
  - Nephrolithiasis [Unknown]
  - Gait inability [Unknown]
  - Scab [Not Recovered/Not Resolved]
  - Musculoskeletal pain [Recovered/Resolved]
  - Fatigue [Unknown]

NARRATIVE: CASE EVENT DATE: 2016
